FAERS Safety Report 20779983 (Version 1)
Quarter: 2022Q2

REPORT INFORMATION
  Report Type: Report from Study
  Country: US (occurrence: US)
  Receive Date: 20220503
  Receipt Date: 20220503
  Transmission Date: 20220720
  Serious: Yes (Death)
  Sender: FDA-Public Use
  Company Number: US-BAUSCH-BL-2020-010096

PATIENT
  Age: 70 Year
  Sex: Female
  Weight: 102.15 kg

DRUGS (14)
  1. XIFAXAN [Suspect]
     Active Substance: RIFAXIMIN
     Indication: Hepatic encephalopathy
     Dosage: STOP DATE: LAST 4 MONTHS FROM THE REPORT
     Route: 048
     Dates: start: 20190123, end: 202001
  2. XIFAXAN [Suspect]
     Active Substance: RIFAXIMIN
     Route: 048
     Dates: end: 20220110
  3. ALPHAGAN P [Concomitant]
     Active Substance: BRIMONIDINE TARTRATE
     Indication: Eye disorder
     Dosage: EVERY 8 HOURS
     Route: 047
  4. DENAVIR [Concomitant]
     Active Substance: PENCICLOVIR
     Indication: Product used for unknown indication
     Dosage: EVERY TWO HOURS DURING WALKING HOURS EXTERNAL 12
     Route: 061
  5. CHONDROITIN SULFATE (BOVINE)\GLUCOSAMINE SULFATE [Concomitant]
     Active Substance: CHONDROITIN SULFATE (BOVINE)\GLUCOSAMINE SULFATE
     Indication: Product used for unknown indication
     Route: 048
  6. KEFLEX [Concomitant]
     Active Substance: CEPHALEXIN
     Indication: Product used for unknown indication
     Route: 048
  7. LUMIGAN [Concomitant]
     Active Substance: BIMATOPROST
     Indication: Eye disorder
     Dosage: AT HOUR  OF SLEEP
     Route: 047
  8. NYSTATIN-TRIAMCINOLONE [Concomitant]
     Indication: Product used for unknown indication
     Dosage: 100000-0.1 UNIT/GM?MORNING AND EVENING
     Route: 061
  9. TIMOLOL MALEATE [Concomitant]
     Active Substance: TIMOLOL MALEATE
     Indication: Eye disorder
     Route: 047
  10. VITAMIN E [Concomitant]
     Active Substance: .ALPHA.-TOCOPHEROL
     Indication: Product used for unknown indication
     Dosage: 600 UNIT
     Route: 048
  11. VITAMIN D [Concomitant]
     Active Substance: VITAMIN D NOS
     Indication: Product used for unknown indication
     Dosage: 400 UNIT CAPSULE TAKES 2 CAPSULES DAILY
     Route: 048
  12. GLIPIZIDE ER [Concomitant]
     Active Substance: GLIPIZIDE
     Indication: Product used for unknown indication
     Dosage: EXTENDED RELEASE, 24 HOURS
     Route: 048
  13. JARDIANCE [Concomitant]
     Active Substance: EMPAGLIFLOZIN
     Indication: Product used for unknown indication
     Route: 048
  14. BYDUREON [Concomitant]
     Active Substance: EXENATIDE
     Indication: Product used for unknown indication
     Dosage: 2 MG/0.65 ML PEN INJECTOR (IN ABDOMEN, THIGH, OR OUTER AREA OF UPPER ARM ROTATING INJECTION)
     Route: 058

REACTIONS (4)
  - Death [Fatal]
  - Memory impairment [Unknown]
  - Ammonia increased [Unknown]
  - Therapy interrupted [Unknown]

NARRATIVE: CASE EVENT DATE: 20200101
